FAERS Safety Report 7639552-7 (Version None)
Quarter: 2011Q3

REPORT INFORMATION
  Report Type: 
  Country: None (occurrence: None)
  Receive Date: 20110727
  Receipt Date: 20110719
  Transmission Date: 20111222
  Serious: Yes (Other)
  Sender: FDA-Public Use
  Company Number: RS-GLAXOSMITHKLINE-B0735078A

PATIENT
  Age: 14 Year
  Sex: Male

DRUGS (2)
  1. SERETIDE DISKUS [Suspect]
     Indication: ASTHMA
     Route: 048
     Dates: start: 20101129, end: 20110407
  2. SINGULAIR [Concomitant]
     Dosage: 5MG PER DAY

REACTIONS (2)
  - BRONCHOSPASM [None]
  - ASPHYXIA [None]
